FAERS Safety Report 16927001 (Version 1)
Quarter: 2019Q4

REPORT INFORMATION
  Report Type: Spontaneous
  Country: CA (occurrence: CA)
  Receive Date: 20191016
  Receipt Date: 20191016
  Transmission Date: 20200122
  Serious: Yes (Hospitalization)
  Sender: FDA-Public Use
  Company Number: CA-PFIZER INC-2019444132

PATIENT
  Age: 88 Year
  Sex: Male
  Weight: 84 kg

DRUGS (7)
  1. PANTOPRAZOLE [Concomitant]
     Active Substance: PANTOPRAZOLE
     Dosage: UNK
  2. TICAGRELOR. [Concomitant]
     Active Substance: TICAGRELOR
     Dosage: UNK
  3. ATORVASTATIN CALCIUM. [Suspect]
     Active Substance: ATORVASTATIN CALCIUM
     Indication: CEREBROVASCULAR ACCIDENT PROPHYLAXIS
     Dosage: 80 MG, 1X/DAY
     Route: 048
  4. ASA [Concomitant]
     Active Substance: ASPIRIN
     Dosage: UNK
  5. ALLOPURINOL. [Concomitant]
     Active Substance: ALLOPURINOL
     Dosage: UNK
  6. METOPROLOL. [Concomitant]
     Active Substance: METOPROLOL
     Dosage: UNK
  7. RAMIPRIL. [Concomitant]
     Active Substance: RAMIPRIL
     Dosage: UNK

REACTIONS (17)
  - Alanine aminotransferase increased [Not Recovered/Not Resolved]
  - Myositis [Not Recovered/Not Resolved]
  - Decreased appetite [Not Recovered/Not Resolved]
  - Magnetic resonance imaging abnormal [Not Recovered/Not Resolved]
  - Renal failure [Not Recovered/Not Resolved]
  - Gait disturbance [Not Recovered/Not Resolved]
  - Lipase abnormal [Not Recovered/Not Resolved]
  - Nausea [Not Recovered/Not Resolved]
  - Asthenia [Not Recovered/Not Resolved]
  - Blood creatine increased [Not Recovered/Not Resolved]
  - Blood creatine phosphokinase MB abnormal [Not Recovered/Not Resolved]
  - Chromaturia [Not Recovered/Not Resolved]
  - Faeces pale [Not Recovered/Not Resolved]
  - Jaundice [Not Recovered/Not Resolved]
  - Pruritus [Not Recovered/Not Resolved]
  - Blood alkaline phosphatase abnormal [Not Recovered/Not Resolved]
  - Rhabdomyolysis [Not Recovered/Not Resolved]
